FAERS Safety Report 6249441-0 (Version None)
Quarter: 2009Q2

REPORT INFORMATION
  Report Type: 
  Country: None (occurrence: None)
  Receive Date: 20090629
  Receipt Date: 20090622
  Transmission Date: 20091009
  Serious: Yes (Hospitalization, Other)
  Sender: FDA-Public Use
  Company Number: A0777896A

PATIENT
  Age: 36 Year
  Sex: Female
  Weight: 59.1 kg

DRUGS (1)
  1. LAMICTAL [Suspect]
     Indication: BIPOLAR DISORDER
     Dosage: 50MG PER DAY
     Route: 048
     Dates: start: 20090101

REACTIONS (7)
  - BLISTER [None]
  - EYE SWELLING [None]
  - HEPATIC LESION [None]
  - MUCOUS MEMBRANE DISORDER [None]
  - RASH ERYTHEMATOUS [None]
  - RASH VESICULAR [None]
  - SCAR [None]
